FAERS Safety Report 9077837 (Version 1)
Quarter: 2013Q1

REPORT INFORMATION
  Report Type: Report from Study
  Country: US (occurrence: US)
  Receive Date: 20130130
  Receipt Date: 20130130
  Transmission Date: 20140127
  Serious: No
  Sender: FDA-Public Use
  Company Number: US-ABBOTT-12P-163-0958765-00

PATIENT
  Age: 65 Year
  Sex: Female

DRUGS (6)
  1. HUMIRA 40 MG/0.8 ML PEN [Suspect]
     Indication: RHEUMATOID ARTHRITIS
     Dates: start: 20120608
  2. PREDNISONE [Concomitant]
     Indication: ARTHRITIS
     Dosage: 5MG DAILY
     Route: 048
  3. FOLIC ACID [Concomitant]
     Indication: PRODUCT USED FOR UNKNOWN INDICATION
     Dosage: 5 MG DAILY
     Route: 048
  4. METHOTREXATE [Concomitant]
     Indication: ARTHRITIS
     Dosage: 2.5MG 5 PILLS WEEKLY
  5. PLENDIL [Concomitant]
     Indication: BLOOD PRESSURE
     Dosage: 37.5/25 MG DAILY
     Route: 048
  6. MAXIDE [Concomitant]
     Indication: BLOOD PRESSURE
     Dosage: DAILY
     Route: 048

REACTIONS (3)
  - Injection site bruising [Recovered/Resolved]
  - Injection site swelling [Recovered/Resolved]
  - Injection site pruritus [Recovered/Resolved]
